FAERS Safety Report 21620382 (Version 2)
Quarter: 2023Q2

REPORT INFORMATION
  Report Type: Report from Study
  Country: BR (occurrence: BR)
  Receive Date: 20221121
  Receipt Date: 20230504
  Transmission Date: 20230721
  Serious: Yes (Hospitalization)
  Sender: FDA-Public Use
  Company Number: BR-JNJFOC-20221133676

PATIENT
  Sex: Male
  Weight: 51 kg

DRUGS (1)
  1. REMICADE [Suspect]
     Active Substance: INFLIXIMAB
     Indication: Crohn^s disease
     Dosage: 2 VIALS
     Route: 041
     Dates: end: 2021

REACTIONS (2)
  - Tracheal oedema [Unknown]
  - Infusion related reaction [Unknown]
